FAERS Safety Report 6468774-6 (Version None)
Quarter: 2009Q4

REPORT INFORMATION
  Report Type: 
  Country: None (occurrence: None)
  Receive Date: 20091203
  Receipt Date: 20091125
  Transmission Date: 20100525
  Serious: Yes (Other)
  Sender: FDA-Public Use
  Company Number: US-BAXTER-2009BH018273

PATIENT
  Age: 58 Year
  Sex: Male

DRUGS (9)
  1. FENTANYL CITRATE [Suspect]
     Indication: INDUCTION AND MAINTENANCE OF ANAESTHESIA
     Route: 042
  2. FENTANYL CITRATE [Suspect]
     Route: 042
  3. CARBIDOPA AND LEVODOPA [Concomitant]
     Indication: PARKINSON'S DISEASE
     Route: 048
  4. ENTACAPONE [Concomitant]
     Indication: PARKINSON'S DISEASE
     Route: 048
  5. ROPINIROLE [Concomitant]
     Indication: PARKINSON'S DISEASE
     Route: 065
  6. AMANTADINE [Concomitant]
     Indication: PARKINSON'S DISEASE
     Route: 065
  7. TRIHEXYPHENIDY [Concomitant]
     Indication: PARKINSON'S DISEASE
     Route: 065
  8. CARBIDOPA AND LEVODOPA [Concomitant]
     Route: 048
  9. PROPOFOL [Concomitant]
     Indication: MAINTENANCE OF ANAESTHESIA
     Route: 042

REACTIONS (2)
  - BRADYKINESIA [None]
  - MUSCLE RIGIDITY [None]
